FAERS Safety Report 9189228 (Version 1)
Quarter: 2013Q1

REPORT INFORMATION
  Report Type: Spontaneous
  Country: SE (occurrence: None)
  Receive Date: 20130322
  Receipt Date: 20130322
  Transmission Date: 20140127
  Serious: Yes (Death, Hospitalization)
  Sender: FDA-Public Use
  Company Number: 2013-05317

PATIENT
  Age: 69 Year
  Sex: Male

DRUGS (8)
  1. AMLODIPINE [Suspect]
     Indication: PRODUCT USED FOR UNKNOWN INDICATION
     Route: 048
  2. METOPROLOL (METOPROLOL) [Suspect]
     Indication: PRODUCT USED FOR UNKNOWN INDICATION
  3. RAMIPRIL (RAMIPRIL) [Suspect]
     Indication: PRODUCT USED FOR UNKNOWN INDICATION
     Route: 048
     Dates: start: 20130321
  4. SAXAGLIPTIN [Suspect]
     Indication: TYPE 2 DIABETES MELLITUS
     Dates: start: 20110408
  5. NOVOMIX [Suspect]
     Indication: TYPE 2 DIABETES MELLITUS
  6. PLACEBO [Suspect]
     Indication: TYPE 2 DIABETES MELLITUS
     Dates: start: 20110408
  7. SUSCARD [Suspect]
     Indication: PRODUCT USED FOR UNKNOWN INDICATION
  8. ASPIRIN (ACETYKSAKUCTKUC ACID) [Concomitant]

REACTIONS (4)
  - Arrhythmia [None]
  - Pneumonia [None]
  - Syncope [None]
  - Snoring [None]
